FAERS Safety Report 8409576-0 (Version None)
Quarter: 2012Q2

REPORT INFORMATION
  Report Type: 
  Country: None (occurrence: None)
  Receive Date: 20120531
  Receipt Date: 20120531
  Transmission Date: 20120825
  Serious: No
  Sender: FDA-Public Use
  Company Number: None

PATIENT
  Age: 72 Year
  Sex: Male

DRUGS (2)
  1. FENTANYL-100 [Suspect]
     Indication: PAIN
     Dosage: 150 MCG OTHER TOP
     Route: 061
     Dates: start: 20120423, end: 20120520
  2. MORPHINE [Suspect]
     Indication: PAIN
     Dosage: 4 MG PRN IV
     Route: 042
     Dates: start: 20120519, end: 20120520

REACTIONS (4)
  - DEPRESSED LEVEL OF CONSCIOUSNESS [None]
  - SEDATION [None]
  - RESPIRATORY DEPRESSION [None]
  - SOMNOLENCE [None]
